FAERS Safety Report 7769089-6 (Version None)
Quarter: 2011Q3

REPORT INFORMATION
  Report Type: 
  Country: None (occurrence: None)
  Receive Date: 20110922
  Receipt Date: 20100517
  Transmission Date: 20111222
  Serious: No
  Sender: FDA-Public Use
  Company Number: US-ASTRAZENECA-2010SE38412

PATIENT
  Age: 50 Year
  Sex: Female

DRUGS (9)
  1. SINGULAIR [Concomitant]
     Dates: start: 20040205
  2. VICODIN [Concomitant]
     Dosage: 5/500 MG Q 6 PRN
     Dates: start: 20040205
  3. TRIGLIDE [Concomitant]
     Dates: start: 20060627
  4. GLUCOPHAGE [Concomitant]
     Route: 048
     Dates: start: 20060627
  5. CALCIUM CARBONATE [Concomitant]
     Dates: start: 20040205
  6. SEROQUEL [Suspect]
     Route: 048
     Dates: start: 20040205
  7. EFFEXOR [Concomitant]
     Dates: start: 20040205
  8. NOVAIN [Concomitant]
     Dosage: 5 MG TWO QHS
     Dates: start: 20040205
  9. COGENTIN [Concomitant]
     Dates: start: 20040205

REACTIONS (7)
  - DYSPHAGIA [None]
  - CHRONIC OBSTRUCTIVE PULMONARY DISEASE [None]
  - OSTEOPENIA [None]
  - COLITIS [None]
  - DIABETES MELLITUS [None]
  - HYPERLIPIDAEMIA [None]
  - DEPRESSION [None]
